FAERS Safety Report 7599641-2 (Version None)
Quarter: 2011Q2

REPORT INFORMATION
  Report Type: 
  Country: None (occurrence: None)
  Receive Date: 20110621
  Receipt Date: 20110615
  Transmission Date: 20111010
  Serious: Yes (Hospitalization)
  Sender: FDA-Public Use
  Company Number: 2011028942

PATIENT
  Age: 68 Year
  Sex: Male
  Weight: 107.5025 kg

DRUGS (19)
  1. HIZENTRA [Suspect]
     Dosage: 2 GM 10 ML VIAL, SUBCUTANEOUS
     Route: 058
  2. SPIRIVA [Concomitant]
  3. DOCUSATE CALCIUM [Concomitant]
  4. ISOSORBIDE DINITRATE [Concomitant]
  5. SINGULAIR [Concomitant]
  6. SIMVASTATIN [Concomitant]
  7. HIZENTRA [Suspect]
     Dosage: 4 GM 20 ML VIAL, SUBCUTANEOUS
     Route: 058
  8. WARFARIN SODIUM [Concomitant]
  9. HIZENTRA [Suspect]
     Indication: IMMUNODEFICIENCY COMMON VARIABLE
     Dosage: 11 G 1X/WEEK, 1 GM 5 ML VIAL; 55 ML IN 304 SITES OVER 1-2 HOURS, SUBCUTANEOUS;
     Route: 058
     Dates: start: 20110316
  10. HIZENTRA [Suspect]
     Indication: ASTHMA
     Dosage: 11 G 1X/WEEK, 1 GM 5 ML VIAL; 55 ML IN 304 SITES OVER 1-2 HOURS, SUBCUTANEOUS;
     Route: 058
     Dates: start: 20110316
  11. HIZENTRA [Suspect]
     Indication: STATUS ASTHMATICUS
     Dosage: 11 G 1X/WEEK, 1 GM 5 ML VIAL; 55 ML IN 304 SITES OVER 1-2 HOURS, SUBCUTANEOUS;
     Route: 058
     Dates: start: 20110316
  12. ALBUTEROL [Concomitant]
  13. NITROGLYCERN (GLYCERYL TRINITRATE) [Concomitant]
  14. BISOPROLOL [Concomitant]
  15. SYMBICORT [Concomitant]
  16. LISINOPRIL [Concomitant]
  17. LASIX [Concomitant]
  18. POTASSIUM [Concomitant]
  19. FINASTERIDE [Concomitant]

REACTIONS (2)
  - INFECTION [None]
  - CONDITION AGGRAVATED [None]
